FAERS Safety Report 5058215-8 (Version None)
Quarter: 2006Q3

REPORT INFORMATION
  Report Type: 
  Country: None (occurrence: None)
  Receive Date: 20060721
  Receipt Date: 20060317
  Transmission Date: 20061208
  Serious: Yes (Other)
  Sender: FDA-Public Use
  Company Number: PHEH2006US03625

PATIENT
  Age: 72 Year
  Sex: Male

DRUGS (2)
  1. ZOMETA [Suspect]
     Dosage: 4 MG EVERY MONTH
     Dates: start: 20040501
  2. LUPRON [Concomitant]
     Dosage: EVERY MONTH

REACTIONS (7)
  - BONE SCAN ABNORMAL [None]
  - BURSITIS [None]
  - JOINT EFFUSION [None]
  - MALIGNANT NEOPLASM PROGRESSION [None]
  - MUSCULOSKELETAL DISCOMFORT [None]
  - OEDEMA PERIPHERAL [None]
  - OSTEONECROSIS [None]
